FAERS Safety Report 21146945 (Version 2)
Quarter: 2022Q3

REPORT INFORMATION
  Report Type: Spontaneous
  Country: DE (occurrence: DE)
  Receive Date: 20220729
  Receipt Date: 20220808
  Transmission Date: 20221026
  Serious: No
  Sender: FDA-Public Use
  Company Number: DE-SANOFI-01206530

PATIENT
  Sex: Male

DRUGS (2)
  1. DUPIXENT [Suspect]
     Active Substance: DUPILUMAB
     Indication: Nasal polyps
  2. CORTISONE [Suspect]
     Active Substance: CORTISONE
     Route: 061

REACTIONS (1)
  - Product use in unapproved indication [Unknown]
